FAERS Safety Report 5086276-9 (Version None)
Quarter: 2006Q3

REPORT INFORMATION
  Report Type: 
  Country: None (occurrence: None)
  Receive Date: 20060703
  Receipt Date: 20050916
  Transmission Date: 20061208
  Serious: No
  Sender: FDA-Public Use
  Company Number: 2005S1009324

PATIENT
  Age: 60 Year
  Sex: Male
  Weight: 70.7611 kg

DRUGS (9)
  1. CLOZAPINE [Suspect]
     Indication: SCHIZOAFFECTIVE DISORDER
     Dosage: SEE IMAGE
     Route: 048
     Dates: start: 20050816
  2. CLOZAPINE [Suspect]
     Indication: SCHIZOAFFECTIVE DISORDER
     Dosage: SEE IMAGE
     Route: 048
     Dates: start: 20050816
  3. LITHIUM [Concomitant]
  4. METFORMIN HCL [Concomitant]
  5. VALPROIC ACID [Concomitant]
  6. WARFARIN SODIUM [Concomitant]
  7. LANSOPRAZOLE [Concomitant]
  8. ATORVASTATIN CALCIUM [Concomitant]
  9. PIOGLITAZONE HYDROCHLORIDE [Concomitant]

REACTIONS (2)
  - GRANULOCYTOPENIA [None]
  - LEUKOPENIA [None]
